FAERS Safety Report 14978632 (Version 1)
Quarter: 2018Q2

REPORT INFORMATION
  Report Type: Spontaneous
  Country: GB (occurrence: GB)
  Receive Date: 20180606
  Receipt Date: 20180606
  Transmission Date: 20180711
  Serious: Yes (Hospitalization, Other)
  Sender: FDA-Public Use
  Company Number: GB-TEVA-2018-GB-902339

PATIENT
  Age: 71 Year
  Sex: Female
  Weight: 77 kg

DRUGS (8)
  1. DERMOVATE [Concomitant]
     Active Substance: CLOBETASOL
     Dosage: 2 DOSAGE FORMS DAILY;
     Route: 065
     Dates: start: 20180102
  2. METFORMIN [Concomitant]
     Active Substance: METFORMIN HYDROCHLORIDE
     Dosage: 1000 MILLIGRAM DAILY;
     Route: 065
     Dates: start: 20180221
  3. PREDNISOLONE. [Concomitant]
     Active Substance: PREDNISOLONE
     Dosage: 30 MILLIGRAM DAILY;
     Route: 065
     Dates: start: 20180126
  4. NOVOMIX [Concomitant]
     Active Substance: INSULIN ASPART
     Dosage: 40 IU (INTERNATIONAL UNIT) DAILY; 20 UNITS TWICE A DAY, OR AS ADVISED BY?HOSPITAL
     Route: 065
     Dates: start: 20180306
  5. CETIRIZINE [Concomitant]
     Active Substance: CETIRIZINE HYDROCHLORIDE
     Dosage: 10 MILLIGRAM DAILY;
     Dates: start: 20180126
  6. TERBINAFINE. [Suspect]
     Active Substance: TERBINAFINE
     Route: 065
  7. ACIDEX [Concomitant]
     Active Substance: CALCIUM CARBONATE\SODIUM ALGINATE\SODIUM BICARBONATE
     Dosage: AFTER MEALS AND AT BEDTIME
     Dates: start: 20180219, end: 20180221
  8. FULTIUM-D3 [Concomitant]
     Active Substance: CHOLECALCIFEROL
     Dosage: 1600 IU (INTERNATIONAL UNIT) DAILY;
     Route: 065
     Dates: start: 20180221

REACTIONS (1)
  - Drug eruption [Recovering/Resolving]

NARRATIVE: CASE EVENT DATE: 20180126
